FAERS Safety Report 19728279 (Version 1)
Quarter: 2021Q3

REPORT INFORMATION
  Report Type: Report from Study
  Country: DE (occurrence: DE)
  Receive Date: 20210820
  Receipt Date: 20210820
  Transmission Date: 20211014
  Serious: Yes (Death)
  Sender: FDA-Public Use
  Company Number: DE-SERVIER-S21009008

PATIENT

DRUGS (2)
  1. TN UNSPECIFIED [Concomitant]
     Indication: ACUTE MYELOID LEUKAEMIA
     Dosage: 3580 MG
     Route: 065
     Dates: start: 20210702, end: 20210707
  2. IVOSIDENIB [Suspect]
     Active Substance: IVOSIDENIB
     Indication: ACUTE MYELOID LEUKAEMIA
     Dates: start: 20210702, end: 20210716

REACTIONS (1)
  - Septic shock [Fatal]

NARRATIVE: CASE EVENT DATE: 20210806
